FAERS Safety Report 6545122-4 (Version None)
Quarter: 2010Q1

REPORT INFORMATION
  Report Type: 
  Country: None (occurrence: None)
  Receive Date: 20100115
  Receipt Date: 20100105
  Transmission Date: 20100710
  Serious: Yes (Death)
  Sender: FDA-Public Use
  Company Number: IDA-00318

PATIENT
  Age: 52 Year
  Sex: Male

DRUGS (3)
  1. PROPRANOLOL [Suspect]
     Dosage: DAILY, ORAL FORMULATION
     Route: 048
  2. ATENOLOL [Suspect]
     Dosage: DAILY ORAL FORMULATION
     Route: 048
  3. (ETHANOL) [Suspect]
     Dosage: DAILY ORAL FORMULATION
     Route: 048

REACTIONS (2)
  - COMPLETED SUICIDE [None]
  - DRUG TOXICITY [None]
